FAERS Safety Report 8023772-6 (Version None)
Quarter: 2012Q1

REPORT INFORMATION
  Report Type: 
  Country: None (occurrence: None)
  Receive Date: 20120103
  Receipt Date: 20120103
  Transmission Date: 20120608
  Serious: No
  Sender: FDA-Public Use
  Company Number: None

PATIENT
  Age: 90 Year
  Sex: Male
  Weight: 69 kg

DRUGS (2)
  1. CEFEPIME [Suspect]
     Dosage: 2 GM EVERY DAY IV
     Route: 042
     Dates: start: 20110912, end: 20110914
  2. CEFTRIAXONE [Suspect]
     Indication: INFECTION
     Dosage: 1 GM ONCE IV
     Route: 042
     Dates: start: 20110911, end: 20110911

REACTIONS (5)
  - OEDEMA [None]
  - MACULE [None]
  - RASH [None]
  - URTICARIA [None]
  - ERYTHEMA [None]
